FAERS Safety Report 8973045 (Version 1)
Quarter: 2012Q4

REPORT INFORMATION
  Report Type: 
  Country: DE (occurrence: DE)
  Receive Date: 20121219
  Receipt Date: 20121219
  Transmission Date: 20130627
  Serious: Yes (Hospitalization)
  Sender: FDA-Public Use
  Company Number: DE-ELI_LILLY_AND_COMPANY-DE201212001827

PATIENT
  Age: 75 Year
  Sex: Female

DRUGS (5)
  1. FORSTEO [Suspect]
     Indication: OSTEOPOROSIS
     Dosage: UNK, qd
     Route: 058
     Dates: start: 20120618
  2. FORSTEO [Suspect]
     Dosage: UNK, qd
     Route: 058
  3. OESTROFEMINAL [Concomitant]
     Dosage: UNK, unknown
     Route: 065
  4. CALCIMAGON D3 [Concomitant]
     Dosage: UNK, unknown
     Route: 065
  5. BEPANTEN [Concomitant]
     Dosage: UNK, prn
     Route: 065

REACTIONS (4)
  - Thyroidectomy [Recovered/Resolved]
  - Paraesthesia [Not Recovered/Not Resolved]
  - Cardiovascular disorder [Not Recovered/Not Resolved]
  - Dizziness [Not Recovered/Not Resolved]
